FAERS Safety Report 6852883-3 (Version None)
Quarter: 2010Q3

REPORT INFORMATION
  Report Type: 
  Country: None (occurrence: None)
  Receive Date: 20100717
  Receipt Date: 20071125
  Transmission Date: 20110219
  Serious: No
  Sender: FDA-Public Use
  Company Number: US-PFIZER INC-2007101648

PATIENT
  Sex: Female
  Weight: 127.3 kg

DRUGS (8)
  1. CHANTIX [Suspect]
     Indication: SMOKING CESSATION THERAPY
     Dates: start: 20071120, end: 20071122
  2. RISPERDAL [Concomitant]
  3. SITAGLIPTIN [Concomitant]
  4. FISH OIL [Concomitant]
  5. GENERAL NUTRIENTS [Concomitant]
  6. XANAX [Concomitant]
  7. FIORINAL [Concomitant]
  8. PROMETHAZINE [Concomitant]

REACTIONS (1)
  - HEADACHE [None]
